FAERS Safety Report 25548869 (Version 1)
Quarter: 2025Q3

REPORT INFORMATION
  Report Type: Spontaneous
  Country: US (occurrence: None)
  Receive Date: 20250713
  Receipt Date: 20250713
  Transmission Date: 20251020
  Serious: Yes (Life-Threatening, Disabling, Other)
  Sender: FDA-CTU
  Company Number: None

PATIENT
  Age: 43 Year
  Sex: Female
  Weight: 71.1 kg

DRUGS (5)
  1. METOPROLOL [Suspect]
     Active Substance: METOPROLOL
     Indication: Tachycardia
     Dosage: FREQUENCY : DAILY;?
     Route: 048
  2. Magneisum [Concomitant]
  3. POTASSIUM [Concomitant]
     Active Substance: POTASSIUM
  4. IODINE [Concomitant]
     Active Substance: IODINE
  5. vitmain d [Concomitant]

REACTIONS (4)
  - Limb discomfort [None]
  - Muscle twitching [None]
  - Amyotrophic lateral sclerosis [None]
  - Therapy cessation [None]
